FAERS Safety Report 8154383-X (Version None)
Quarter: 2012Q1

REPORT INFORMATION
  Report Type: 
  Country: None (occurrence: None)
  Receive Date: 20120221
  Receipt Date: 20120215
  Transmission Date: 20120608
  Serious: Yes (Other)
  Sender: FDA-Public Use
  Company Number: US-BAYER-2012-015757

PATIENT
  Age: 63 Year
  Sex: Female
  Weight: 82 kg

DRUGS (5)
  1. ANTIHYPERTENSIVES [Concomitant]
     Indication: ISCHAEMIC HEART DISEASE PROPHYLAXIS
  2. FISH OIL [Concomitant]
     Indication: VITAMIN SUPPLEMENTATION
  3. MULTIVITE [VITAMINS NOS] [Concomitant]
     Indication: VITAMIN SUPPLEMENTATION
  4. INSULIN [Concomitant]
  5. ASPIRIN [Suspect]
     Indication: ISCHAEMIC HEART DISEASE PROPHYLAXIS
     Dosage: 1 DF, QD
     Route: 048
     Dates: start: 20120213, end: 20120214

REACTIONS (1)
  - HAEMATOCHEZIA [None]
